FAERS Safety Report 5860384-4 (Version None)
Quarter: 2008Q3

REPORT INFORMATION
  Report Type: 
  Country: None (occurrence: None)
  Receive Date: 20080827
  Receipt Date: 20080820
  Transmission Date: 20090109
  Serious: Yes (Other)
  Sender: FDA-Public Use
  Company Number: US-JNJCH-2008021631

PATIENT
  Age: 40 Year
  Sex: Female
  Weight: 80.3 kg

DRUGS (1)
  1. BENADRYL ALLERGY QUICK DISSOLVE STRIPS [Suspect]
     Indication: HYPERSENSITIVITY
     Dosage: TEXT:ONE STRIP 2 TIMES
     Route: 048

REACTIONS (3)
  - DYSPHAGIA [None]
  - PHARYNGEAL HYPOAESTHESIA [None]
  - THROAT TIGHTNESS [None]
